FAERS Safety Report 5801904-5 (Version None)
Quarter: 2008Q3

REPORT INFORMATION
  Report Type: 
  Country: None (occurrence: None)
  Receive Date: 20080707
  Receipt Date: 20080630
  Transmission Date: 20090109
  Serious: Yes (Life-Threatening, Hospitalization)
  Sender: FDA-Public Use
  Company Number: FR-ASTRAZENECA-2008CG01003

PATIENT
  Age: 20387 Day
  Sex: Male

DRUGS (6)
  1. DIPRIVAN [Suspect]
     Indication: GENERAL ANAESTHESIA
     Route: 042
     Dates: start: 20080514, end: 20080514
  2. CELOCURIN [Suspect]
     Indication: GENERAL ANAESTHESIA
     Route: 042
     Dates: start: 20080514, end: 20080514
  3. SUFENTANIL CITRATE [Suspect]
     Indication: GENERAL ANAESTHESIA
     Route: 042
     Dates: start: 20080514, end: 20080514
  4. CELIPROLOL [Concomitant]
  5. PERMIXON [Concomitant]
     Route: 048
  6. OMIX LP [Concomitant]
     Route: 048

REACTIONS (3)
  - CARDIAC ARREST [None]
  - CIRCULATORY COLLAPSE [None]
  - ERYTHEMA [None]
